FAERS Safety Report 6747492-0 (Version None)
Quarter: 2010Q2

REPORT INFORMATION
  Report Type: 
  Country: None (occurrence: None)
  Receive Date: 20100528
  Receipt Date: 20100525
  Transmission Date: 20101027
  Serious: Yes (Disabling)
  Sender: FDA-Public Use
  Company Number: US-MERCK-1005USA04287

PATIENT
  Age: 43 Year
  Sex: Female

DRUGS (6)
  1. JANUVIA [Suspect]
     Indication: TYPE 2 DIABETES MELLITUS
     Route: 048
     Dates: start: 20080101, end: 20080101
  2. JANUVIA [Suspect]
     Route: 048
     Dates: start: 20080101
  3. FIORICET [Concomitant]
     Route: 065
  4. AMBIEN [Concomitant]
     Route: 065
  5. LEXAPRO [Concomitant]
     Route: 065
  6. DEPLIN [Concomitant]
     Route: 065

REACTIONS (4)
  - DYSARTHRIA [None]
  - FALL [None]
  - FATIGUE [None]
  - WEIGHT DECREASED [None]
